FAERS Safety Report 20993301 (Version 2)
Quarter: 2023Q1

REPORT INFORMATION
  Report Type: Spontaneous
  Country: US (occurrence: US)
  Receive Date: 20220622
  Receipt Date: 20230210
  Transmission Date: 20230417
  Serious: No
  Sender: FDA-Public Use
  Company Number: US-PFIZER INC-202200857515

PATIENT
  Age: 64 Year
  Sex: Female

DRUGS (1)
  1. XELJANZ [Suspect]
     Active Substance: TOFACITINIB CITRATE
     Dosage: 5 MG, TAKE 1 TABLET IN THE MORNING + 1 TABLET AT BEDTIME
     Route: 048

REACTIONS (2)
  - Influenza [Recovering/Resolving]
  - Drug ineffective [Not Recovered/Not Resolved]
